FAERS Safety Report 10234469 (Version 1)
Quarter: 2014Q2

REPORT INFORMATION
  Report Type: Spontaneous
  Country: US (occurrence: US)
  Receive Date: 20140613
  Receipt Date: 20140613
  Transmission Date: 20141212
  Serious: No
  Sender: FDA-Public Use
  Company Number: US-B.I. PHARMACEUTICALS,INC./RIDGEFIELD-2014-BI-25056BP

PATIENT
  Age: 71 Year
  Sex: Female

DRUGS (5)
  1. COMBIVENT [Suspect]
     Indication: BRONCHITIS
     Dosage: DOSE PER APPLICATION: 18 MCG / 103 MCG
     Route: 055
     Dates: end: 2014
  2. COMBIVENT [Suspect]
     Indication: BRONCHITIS
     Dosage: DOSE PER APPLICATION: 20 MCG / 100 MCG
     Route: 055
     Dates: start: 2014
  3. VENTOLIN [Concomitant]
     Indication: ASTHMA
     Dosage: FORMUALTION: INHALATION AEROSOL
     Route: 055
     Dates: start: 1984
  4. ADVAIR [Concomitant]
     Dosage: FORMUALTION: INHALATION AEROSOL
     Route: 055
  5. UNSPECIFIED INHALER HFA [Concomitant]
     Dosage: FORMUALTION:INHALATION AEROSOL
     Route: 055
     Dates: start: 2014, end: 201405

REACTIONS (2)
  - Blood glucose increased [Recovered/Resolved]
  - Diabetes mellitus [Not Recovered/Not Resolved]
